FAERS Safety Report 6587895-0 (Version None)
Quarter: 2010Q1

REPORT INFORMATION
  Report Type: 
  Country: None (occurrence: None)
  Receive Date: 20100217
  Receipt Date: 20100217
  Transmission Date: 20100710
  Serious: Yes (Life-Threatening)
  Sender: FDA-Public Use
  Company Number: None

PATIENT
  Age: 84 Year
  Sex: Female
  Weight: 74.8435 kg

DRUGS (1)
  1. NITROFURANTOIN MACROCRYSTALLINE [Suspect]
     Indication: CYSTITIS
     Dosage: 100MGMYL 2 X DAY PO
     Route: 048
     Dates: start: 20100201, end: 20100210

REACTIONS (9)
  - ABDOMINAL DISTENSION [None]
  - CHILLS [None]
  - CONSTIPATION [None]
  - DYSPNOEA [None]
  - FATIGUE [None]
  - MYOCARDIAL INFARCTION [None]
  - NAUSEA [None]
  - PYREXIA [None]
  - URTICARIA [None]
